FAERS Safety Report 8950777 (Version 1)
Quarter: 2012Q4

REPORT INFORMATION
  Report Type: 
  Country: DE (occurrence: DE)
  Receive Date: 20121206
  Receipt Date: 20121206
  Transmission Date: 20130627
  Serious: Yes (Other)
  Sender: FDA-Public Use
  Company Number: DE-MYLANLABS-2012S1024505

PATIENT
  Age: 0 Year
  Sex: Female
  Weight: 3.72 kg

DRUGS (3)
  1. MIRTAZAPIN [Suspect]
     Dosage: 15 [mg/d ]/ since December 2011
     Route: 064
  2. SERTRALINE [Suspect]
     Dosage: 50 [mg/d ]/ Beginning unclear, taken until delivery
     Route: 064
  3. CENTRUM [Concomitant]
     Dosage: 0.4 [mg/d ]
     Route: 064

REACTIONS (2)
  - Infantile apnoeic attack [Recovered/Resolved]
  - Exposure during pregnancy [Recovered/Resolved]
